FAERS Safety Report 6961449-6 (Version None)
Quarter: 2010Q3

REPORT INFORMATION
  Report Type: 
  Country: None (occurrence: None)
  Receive Date: 20100901
  Receipt Date: 20100809
  Transmission Date: 20110219
  Serious: Yes (Hospitalization)
  Sender: FDA-Public Use
  Company Number: US-BAYER-201023612NA

PATIENT
  Age: 48 Year
  Sex: Female
  Weight: 57 kg

DRUGS (5)
  1. YAZ [Suspect]
     Indication: PREMENSTRUAL SYNDROME
     Dates: start: 20040101
  2. SYNTHROID [Concomitant]
     Indication: THYROID DISORDER
     Dates: start: 20040401
  3. ZIAC [Concomitant]
     Indication: BLOOD PRESSURE ABNORMAL
     Dates: start: 20050401
  4. ANTIBIOTICS [Concomitant]
  5. NORETHINDRONE AND ETHINYL ESTRADIOL [Concomitant]

REACTIONS (4)
  - ABDOMINAL PAIN [None]
  - GALLBLADDER NON-FUNCTIONING [None]
  - GALLBLADDER PAIN [None]
  - NAUSEA [None]
